FAERS Safety Report 6998650-1 (Version None)
Quarter: 2010Q3

REPORT INFORMATION
  Report Type: 
  Country: None (occurrence: None)
  Receive Date: 20100920
  Receipt Date: 20100402
  Transmission Date: 20110219
  Serious: No
  Sender: FDA-Public Use
  Company Number: US-ASTRAZENECA-2010SE14637

PATIENT
  Age: 419 Month
  Sex: Female
  Weight: 83.9 kg

DRUGS (9)
  1. SEROQUEL [Suspect]
     Indication: BIPOLAR DISORDER
     Route: 048
     Dates: start: 20091201, end: 20100101
  2. VALIUM [Concomitant]
     Indication: ANXIETY
  3. LAMICTAL [Concomitant]
     Indication: BIPOLAR DISORDER
  4. CELEXA [Concomitant]
     Indication: BIPOLAR DISORDER
  5. WELLBUTRIN [Concomitant]
     Indication: BIPOLAR DISORDER
  6. GEODON [Concomitant]
     Indication: BIPOLAR DISORDER
  7. DARVACET [Concomitant]
     Indication: PAIN
  8. LORTAB [Concomitant]
     Indication: PAIN
  9. FLEXERALL [Concomitant]

REACTIONS (5)
  - COLD SWEAT [None]
  - DIZZINESS [None]
  - DRUG DOSE OMISSION [None]
  - FATIGUE [None]
  - TREMOR [None]
